FAERS Safety Report 4552131-3 (Version None)
Quarter: 2005Q1

REPORT INFORMATION
  Report Type: 
  Country: None (occurrence: None)
  Receive Date: 20050112
  Receipt Date: 20041228
  Transmission Date: 20050727
  Serious: Yes (Hospitalization, Other)
  Sender: FDA-Public Use
  Company Number: MC200400886

PATIENT
  Sex: Female

DRUGS (10)
  1. ANGIOMAX [Suspect]
     Indication: DEPRESSION
     Dosage: 60 MG
     Dates: start: 20040915, end: 20041028
  2. LITHIUM [Concomitant]
  3. TOPAMAX [Concomitant]
  4. ALPHACUTANEE (CHYMOTRYPSIN) [Concomitant]
  5. CONTRACEPTIVE PILL (ORAL CONTRACEPTIVE NOS) [Concomitant]
  6. ELAVIL [Concomitant]
  7. ATARAX(ALPRAZOLAM DUM) [Concomitant]
  8. PYRIDIUM (PHENAZOPYRIDINE HYDROCHLORIDE) [Concomitant]
  9. HEPARIN [Concomitant]
  10. VICODIN [Concomitant]

REACTIONS (9)
  - CORONARY ARTERY THROMBOSIS [None]
  - GASTRITIS HAEMORRHAGIC [None]
  - HAEMOPTYSIS [None]
  - HYPOTENSION [None]
  - HYPOXIA [None]
  - MOUTH HAEMORRHAGE [None]
  - MYOCARDIAL INFARCTION [None]
  - POST PROCEDURAL COMPLICATION [None]
  - RENAL FAILURE [None]
